FAERS Safety Report 7250578-8 (Version None)
Quarter: 2011Q1

REPORT INFORMATION
  Report Type: 
  Country: None (occurrence: None)
  Receive Date: 20110128
  Receipt Date: 20110124
  Transmission Date: 20110831
  Serious: Yes (Death)
  Sender: FDA-Public Use
  Company Number: DZ-ROCHE-755481

PATIENT
  Age: 45 Year
  Sex: Male

DRUGS (3)
  1. NAVELBINE [Suspect]
     Dosage: FREQUENCY: PER CURE
     Route: 042
  2. AVASTIN [Suspect]
     Dosage: THIRD CURE
     Route: 042
     Dates: start: 20101130, end: 20101130
  3. AVASTIN [Suspect]
     Dosage: FREQUENCY: PER CURE, DOSES INCREASED PROGRESSIVELY
     Route: 042
     Dates: start: 20100901

REACTIONS (1)
  - GENERAL PHYSICAL HEALTH DETERIORATION [None]
